FAERS Safety Report 8801652 (Version 1)
Quarter: 2012Q4

REPORT INFORMATION
  Report Type: 
  Country: US (occurrence: US)
  Receive Date: 20120921
  Receipt Date: 20120921
  Transmission Date: 20130627
  Serious: Yes (Other)
  Sender: FDA-Public Use
  Company Number: US-JNJFOC-20120907209

PATIENT
  Sex: Female

DRUGS (1)
  1. XARELTO [Suspect]
     Indication: SURGERY
     Route: 048

REACTIONS (5)
  - Cerebrovascular accident [Unknown]
  - Cardiac disorder [Unknown]
  - Abasia [Unknown]
  - Oedema peripheral [Unknown]
  - Vomiting [Unknown]
